FAERS Safety Report 8221941-3 (Version None)
Quarter: 2012Q1

REPORT INFORMATION
  Report Type: 
  Country: None (occurrence: None)
  Receive Date: 20120320
  Receipt Date: 20120309
  Transmission Date: 20120608
  Serious: Yes (Other)
  Sender: FDA-Public Use
  Company Number: US-ALEXION-A201200338

PATIENT

DRUGS (5)
  1. VERAPAMIL [Concomitant]
     Dosage: UNK
  2. ASTEPRO [Concomitant]
     Indication: RHINITIS
     Dosage: UNK
  3. ANTICORT [Concomitant]
     Indication: COELIAC DISEASE
     Dosage: UNK
  4. ASPIRIN [Concomitant]
     Dosage: UNK
  5. SOLIRIS [Suspect]
     Indication: HAEMOLYTIC URAEMIC SYNDROME
     Dosage: 900 MG, Q 2-3W
     Route: 042

REACTIONS (3)
  - SHUNT OCCLUSION [None]
  - DRUG HYPERSENSITIVITY [None]
  - SINUSITIS [None]
